FAERS Safety Report 10023079 (Version 1)
Quarter: 2014Q1

REPORT INFORMATION
  Report Type: Spontaneous
  Country: GB (occurrence: GB)
  Receive Date: 20140319
  Receipt Date: 20140319
  Transmission Date: 20141002
  Serious: Yes (Other)
  Sender: FDA-Public Use
  Company Number: GB-MYLANLABS-2014S1000598

PATIENT
  Age: 48 Year
  Sex: Female
  Weight: 54 kg

DRUGS (4)
  1. AZITHROMYCIN [Suspect]
     Indication: INFECTION
     Route: 048
     Dates: start: 201312, end: 20140207
  2. METRONIDAZOLE [Concomitant]
     Indication: PRODUCT USED FOR UNKNOWN INDICATION
     Dosage: PULSED WITH QUINORIC
     Route: 048
  3. QUINORIC [Concomitant]
     Indication: PRODUCT USED FOR UNKNOWN INDICATION
     Dosage: ONE A DAY, FOUR DAYS A WEEEK PULSED WITH QUINORIC
     Route: 048
  4. THYROXINE [Concomitant]
     Indication: HYPOTHYROIDISM

REACTIONS (2)
  - Drug ineffective [Recovering/Resolving]
  - Self-medication [Unknown]
